FAERS Safety Report 23714909 (Version 1)
Quarter: 2024Q2

REPORT INFORMATION
  Report Type: Spontaneous
  Country: CA (occurrence: CA)
  Receive Date: 20240406
  Receipt Date: 20240406
  Transmission Date: 20240716
  Serious: Yes (Other)
  Sender: FDA-Public Use
  Company Number: CA-CELLTRION INC.-2023CA017394

PATIENT

DRUGS (4)
  1. INFLECTRA [Suspect]
     Active Substance: INFLIXIMAB-DYYB
     Indication: Colitis ulcerative
     Dosage: 5 MG/KG, W2,6 THEN EVERY 8 WEEK (FIRST DOSE RECEIVED AT THE HOSPITAL)
     Route: 042
     Dates: start: 20221114
  2. INFLECTRA [Suspect]
     Active Substance: INFLIXIMAB-DYYB
     Dosage: 5 MG/KG, W2,6 THEN EVERY 8 WEEK (FIRST DOSE RECEIVED AT THE HOSPITAL)
     Route: 042
     Dates: start: 20230817
  3. INFLECTRA [Suspect]
     Active Substance: INFLIXIMAB-DYYB
     Dosage: 5 MG/KG, EVERY 8 WEEKS
     Route: 042
     Dates: start: 20240201
  4. INFLECTRA [Suspect]
     Active Substance: INFLIXIMAB-DYYB
     Dosage: 420 MG (5 MG/KG), EVERY 8 WEEKS
     Route: 042
     Dates: start: 20240328

REACTIONS (4)
  - Arthralgia [Not Recovered/Not Resolved]
  - Joint effusion [Recovered/Resolved]
  - Dry skin [Not Recovered/Not Resolved]
  - Psoriasis [Not Recovered/Not Resolved]
